FAERS Safety Report 11170489 (Version 1)
Quarter: 2015Q2

REPORT INFORMATION
  Report Type: Spontaneous
  Country: DE (occurrence: None)
  Receive Date: 20150604
  Receipt Date: 20150604
  Transmission Date: 20150821
  Serious: Yes (Congenital Anomaly)
  Sender: FDA-Public Use
  Company Number: DE-H14001-15-00816

PATIENT
  Sex: Male

DRUGS (7)
  1. NATULAN (PROCARBAZINE HYDROCHLORIDE) (UNKNOWN) [Suspect]
     Active Substance: PROCARBAZINE HYDROCHLORIDE
     Indication: HODGKIN^S DISEASE
     Dosage: (FATHER RECEIVED 7 CYCLES OF TREATMENT)
     Dates: end: 201207
  2. VINCRISTIN (VINCRISTINE SULFATE) [Suspect]
     Active Substance: VINCRISTINE SULFATE
     Indication: HODGKIN^S DISEASE
     Dosage: (UNKNOWN, FATHER RECEIVED 7 CYCLES OF TREATMENT), UNKNOWN
     Dates: end: 201207
  3. ADRIAMYCIN [Suspect]
     Active Substance: DOXORUBICIN HYDROCHLORIDE
     Indication: HODGKIN^S DISEASE
     Dosage: (FATHER RECEIVED 7 CYCLES OF TREATMENT)
     Dates: end: 201207
  4. CYCLOPHOSPHAMIDE (CYCLOPHOSPHAMIDE) (UNKNOWN) (CYCLOPHOSAPHAMIDE) [Suspect]
     Active Substance: CYCLOPHOSPHAMIDE
     Indication: HODGKIN^S DISEASE
     Dosage: (FATHER RECEIVED 7 CYCLES OF TREATMENT)
     Dates: end: 201207
  5. PREDNISOLONE (PREDNISOLONE) UNKNOWN [Suspect]
     Active Substance: PREDNISOLONE
     Indication: HODGKIN^S DISEASE
     Dosage: (FATHER RECEIVED 7 CYCLES OF TREATMENT)
     Dates: end: 201207
  6. ETOPOSIDE (ETOPOSIDE) (UNKNOWN) (ETOPOSIDE) [Suspect]
     Active Substance: ETOPOSIDE
     Indication: HODGKIN^S DISEASE
     Dosage: (FATHER RECEIVED 7 CYCLES OF TREATMENT)
     Dates: end: 201207
  7. BLEOMYCIN [Suspect]
     Active Substance: BLEOMYCIN SULFATE
     Indication: HODGKIN^S DISEASE
     Dosage: (FATHER RECEIVED 7 CYCLES OF TREATMENT)
     Dates: end: 201207

REACTIONS (2)
  - Heart disease congenital [None]
  - Maternal drugs affecting foetus [None]

NARRATIVE: CASE EVENT DATE: 20150220
